FAERS Safety Report 5157704-5 (Version None)
Quarter: 2006Q4

REPORT INFORMATION
  Report Type: 
  Country: None (occurrence: None)
  Receive Date: 20061127
  Receipt Date: 20060118
  Transmission Date: 20070319
  Serious: Yes (Hospitalization, Disabling)
  Sender: FDA-Public Use
  Company Number: US-ROCHE-432854

PATIENT
  Age: 19 Year
  Sex: Male
  Weight: 59 kg

DRUGS (2)
  1. ACCUTANE [Suspect]
     Indication: ACNE
     Dosage: ACCUTANE ALTERNATING BETWEEN 40 MG AND 80 MG.
     Route: 048
     Dates: start: 19921023, end: 19930625
  2. ACCUTANE [Suspect]
     Route: 048
     Dates: start: 19930626

REACTIONS (30)
  - ADHESION [None]
  - ANAEMIA [None]
  - ARTHRALGIA [None]
  - BACK PAIN [None]
  - BONE DISORDER [None]
  - BONE PAIN [None]
  - COLITIS [None]
  - COLITIS ULCERATIVE [None]
  - CROHN'S DISEASE [None]
  - DEHYDRATION [None]
  - DRUG HYPERSENSITIVITY [None]
  - ELECTROLYTE IMBALANCE [None]
  - ENTERITIS [None]
  - EPISTAXIS [None]
  - FAECES DISCOLOURED [None]
  - FRACTURE [None]
  - GASTROINTESTINAL DISORDER [None]
  - HYPOPROTEINAEMIA [None]
  - HYPOTENSION [None]
  - IMPAIRED HEALING [None]
  - INFLAMMATORY BOWEL DISEASE [None]
  - INSOMNIA [None]
  - IRRITABLE BOWEL SYNDROME [None]
  - NECK INJURY [None]
  - PRURITUS [None]
  - SKIN DISORDER [None]
  - SLEEP APNOEA SYNDROME [None]
  - SMALL INTESTINAL OBSTRUCTION [None]
  - VITILIGO [None]
  - WEIGHT INCREASED [None]
